FAERS Safety Report 4746088-X (Version None)
Quarter: 2005Q3

REPORT INFORMATION
  Report Type: 
  Country: None (occurrence: None)
  Receive Date: 20050816
  Receipt Date: 20050706
  Transmission Date: 20060218
  Serious: Yes (Hospitalization, Other)
  Sender: FDA-Public Use
  Company Number: PHRM2005FR02043

PATIENT
  Age: 48 Year
  Sex: Male
  Weight: 62 kg

DRUGS (1)
  1. LEPONEX [Suspect]
     Indication: PSYCHOTIC DISORDER
     Dosage: 400 MG DAILY
     Route: 048
     Dates: start: 20020101

REACTIONS (2)
  - COLON CANCER [None]
  - METASTASES TO LIVER [None]
